FAERS Safety Report 8302545-0 (Version None)
Quarter: 2012Q2

REPORT INFORMATION
  Report Type: 
  Country: None (occurrence: None)
  Receive Date: 20120420
  Receipt Date: 20120412
  Transmission Date: 20120825
  Serious: Yes (Other)
  Sender: FDA-Public Use
  Company Number: US-BAYER-2012-036032

PATIENT
  Age: 65 Year
  Sex: Female
  Weight: 70.295 kg

DRUGS (3)
  1. HYDROCHLOROTHIAZIDE [Concomitant]
  2. ASP SEVERE SINUS CONGESTION ALLERGY + COUGH LG [Suspect]
     Indication: SEASONAL ALLERGY
     Dosage: 2 DF, ONCE
     Route: 048
     Dates: start: 20120411, end: 20120411
  3. SYNTHROID [Concomitant]

REACTIONS (2)
  - MEMORY IMPAIRMENT [None]
  - CONFUSIONAL STATE [None]
